FAERS Safety Report 16477409 (Version 1)
Quarter: 2019Q2

REPORT INFORMATION
  Report Type: Spontaneous
  Country: FR (occurrence: FR)
  Receive Date: 20190626
  Receipt Date: 20190626
  Transmission Date: 20190711
  Serious: Yes (Other)
  Sender: FDA-Public Use
  Company Number: FR-AMGEN-FRASP2019098895

PATIENT
  Age: 70 Year
  Sex: Female

DRUGS (5)
  1. ROMIPLOSTIM [Suspect]
     Active Substance: ROMIPLOSTIM
     Indication: IMMUNE THROMBOCYTOPENIC PURPURA
     Dosage: UNK
     Route: 065
  2. VINBLASTINE [Concomitant]
     Active Substance: VINBLASTINE
     Indication: IMMUNE THROMBOCYTOPENIC PURPURA
  3. CYCLOPHOSPHAMIDE. [Concomitant]
     Active Substance: CYCLOPHOSPHAMIDE
     Indication: IMMUNE THROMBOCYTOPENIC PURPURA
  4. ELTROMBOPAG [Concomitant]
     Active Substance: ELTROMBOPAG
     Indication: IMMUNE THROMBOCYTOPENIC PURPURA
  5. RITUXIMAB. [Concomitant]
     Active Substance: RITUXIMAB
     Indication: IMMUNE THROMBOCYTOPENIC PURPURA

REACTIONS (4)
  - Therapy non-responder [Unknown]
  - Anti-platelet antibody positive [Unknown]
  - Transitional cell carcinoma [Unknown]
  - Papillary renal cell carcinoma [Unknown]
